FAERS Safety Report 5068999-0 (Version None)
Quarter: 2006Q3

REPORT INFORMATION
  Report Type: 
  Country: None (occurrence: None)
  Receive Date: 20060802
  Receipt Date: 20060724
  Transmission Date: 20061208
  Serious: Yes (Hospitalization, Disabling)
  Sender: FDA-Public Use
  Company Number: PHHO2006CL11933

PATIENT
  Age: 60 Year
  Sex: Female

DRUGS (1)
  1. ZELMAC / HTF 919A [Suspect]
     Dosage: 6 MG, BID
     Route: 048
     Dates: start: 20060401

REACTIONS (1)
  - SURGERY [None]
